FAERS Safety Report 8285511-3 (Version None)
Quarter: 2012Q2

REPORT INFORMATION
  Report Type: 
  Country: None (occurrence: None)
  Receive Date: 20120413
  Receipt Date: 20110919
  Transmission Date: 20120825
  Serious: No
  Sender: FDA-Public Use
  Company Number: US-ASTRAZENECA-2011SE52096

PATIENT
  Age: 64 Year
  Sex: Female

DRUGS (20)
  1. ASPIRIN [Concomitant]
  2. CYANOCOBALAMIN [Concomitant]
  3. ASCORBIC ACID [Concomitant]
  4. ZITHROMAX [Concomitant]
  5. GLUCOSAMINE CHONDR COMPLEX [Concomitant]
  6. LIDOCAINE (XYLOCAINE) [Concomitant]
  7. BENADRYL [Concomitant]
  8. MENTHOL ZINC OXIDE (CALMOSEPTINE) [Concomitant]
  9. PLAVIX [Concomitant]
  10. EXFORGE [Concomitant]
  11. COENZYME Q10 [Concomitant]
  12. PSEUDOEPHEDRINE (SUDAFED) [Concomitant]
  13. ROSUVASTATIN CALCIUM [Concomitant]
  14. NEXIUM [Suspect]
     Route: 048
  15. OMEPRAZOLE [Suspect]
     Route: 048
     Dates: start: 20110501
  16. ACIPHEX [Concomitant]
  17. ALPHA TOCOPHEROL (VITAMIN E) [Concomitant]
  18. FLEXERIL [Concomitant]
     Indication: MUSCLE SPASMS
  19. FERROUS SULFATE (RA IRON) [Concomitant]
  20. GNP CRANBERRY [Concomitant]

REACTIONS (10)
  - DRUG INEFFECTIVE [None]
  - SINUS CONGESTION [None]
  - GASTROOESOPHAGEAL REFLUX DISEASE [None]
  - EAR DISCOMFORT [None]
  - SINUSITIS [None]
  - DRUG DOSE OMISSION [None]
  - GASTRIC DISORDER [None]
  - COUGH [None]
  - DYSPEPSIA [None]
  - UPPER-AIRWAY COUGH SYNDROME [None]
